FAERS Safety Report 6283041-1 (Version None)
Quarter: 2009Q3

REPORT INFORMATION
  Report Type: 
  Country: None (occurrence: None)
  Receive Date: 20090724
  Receipt Date: 20090713
  Transmission Date: 20100115
  Serious: Yes (Life-Threatening)
  Sender: FDA-Public Use
  Company Number: GB-TEVA-202673ISR

PATIENT
  Sex: Male
  Weight: 95 kg

DRUGS (3)
  1. TRIMETHOPRIM [Suspect]
     Indication: URINARY TRACT INFECTION
     Route: 065
     Dates: start: 20090501, end: 20090710
  2. TRAMADOL [Concomitant]
     Indication: PAIN
  3. PARACETAMOL [Concomitant]
     Indication: PAIN

REACTIONS (2)
  - CONDITION AGGRAVATED [None]
  - MUSCLE SPASMS [None]
